FAERS Safety Report 5932449-X (Version None)
Quarter: 2008Q4

REPORT INFORMATION
  Report Type: 
  Country: None (occurrence: None)
  Receive Date: 20081028
  Receipt Date: 20081017
  Transmission Date: 20090506
  Serious: Yes (Death)
  Sender: FDA-Public Use
  Company Number: US-ROCHE-592562

PATIENT
  Sex: Female

DRUGS (3)
  1. ISOTRETINOIN [Suspect]
     Indication: ACNE
     Dosage: THE PATIENT WAS DISPENSED ORAL ISOTRETINOIN 40 MG TABLET IN 2001.
     Route: 048
  2. YASMIN [Concomitant]
     Dosage: FORM: PILL
  3. ADDERALL 10 [Concomitant]

REACTIONS (1)
  - COMPLETED SUICIDE [None]
